FAERS Safety Report 11940635 (Version 1)
Quarter: 2016Q1

REPORT INFORMATION
  Report Type: Spontaneous
  Country: IL (occurrence: IL)
  Receive Date: 20160122
  Receipt Date: 20160122
  Transmission Date: 20160526
  Serious: Yes (Hospitalization)
  Sender: FDA-Public Use
  Company Number: IL-PFIZER INC-2016028747

PATIENT
  Age: 9 Decade
  Sex: Female

DRUGS (1)
  1. SUTENT [Suspect]
     Active Substance: SUNITINIB MALATE
     Indication: RENAL CELL CARCINOMA
     Dosage: 50 MG, 4/2 SCHEDULE

REACTIONS (4)
  - Diarrhoea [Unknown]
  - Dehydration [Unknown]
  - Renal failure [Unknown]
  - Delirium [Unknown]
